FAERS Safety Report 24178401 (Version 1)
Quarter: 2024Q3

REPORT INFORMATION
  Report Type: Spontaneous
  Country: CA (occurrence: CA)
  Receive Date: 20240806
  Receipt Date: 20240806
  Transmission Date: 20241016
  Serious: Yes (Disabling, Other)
  Sender: ACCORD
  Company Number: None

PATIENT
  Age: 6 Month
  Sex: Female

DRUGS (7)
  1. METHOTREXATE [Suspect]
     Active Substance: METHOTREXATE
     Indication: Atypical teratoid/rhabdoid tumour of CNS
     Dosage: SOLUTION INTRA- ARTERIAL,
     Route: 037
  2. DOXORUBICIN [Suspect]
     Active Substance: DOXORUBICIN
     Indication: Atypical teratoid/rhabdoid tumour of CNS
     Dosage: INTRAVENOUS
     Route: 065
  3. ALISERTIB [Concomitant]
     Active Substance: ALISERTIB
     Indication: Atypical teratoid/rhabdoid tumour of CNS
     Route: 048
  4. CYTARABINE [Suspect]
     Active Substance: CYTARABINE
     Indication: Atypical teratoid/rhabdoid tumour of CNS
     Dosage: POWDER FOR SOLUTION INTRATHECAL
     Route: 037
  5. DACTINOMYCIN [Suspect]
     Active Substance: DACTINOMYCIN
     Indication: Atypical teratoid/rhabdoid tumour of CNS
     Route: 065
  6. ETOPOSIDE [Suspect]
     Active Substance: ETOPOSIDE
     Indication: Atypical teratoid/rhabdoid tumour of CNS
     Route: 065
  7. HYDROCORTISONE [Suspect]
     Active Substance: HYDROCORTISONE\HYDROCORTISONE ACETATE
     Indication: Atypical teratoid/rhabdoid tumour of CNS
     Route: 037

REACTIONS (7)
  - Off label use [Recovered/Resolved]
  - Deafness [Recovered/Resolved]
  - Hemiparesis [Recovered/Resolved]
  - Drug ineffective [Recovered/Resolved]
  - Speech disorder developmental [Recovered/Resolved]
  - Neutropenia [Recovering/Resolving]
  - Somnolence [Recovering/Resolving]
